FAERS Safety Report 10371523 (Version 1)
Quarter: 2014Q1

REPORT INFORMATION
  Report Type: Spontaneous
  Country: US (occurrence: None)
  Receive Date: 20140306
  Receipt Date: 20140306
  Transmission Date: 20141002
  Serious: Yes (Other)
  Sender: FDA-Public Use
  Company Number: 163-21880-12112496

PATIENT
  Age: 69 Year
  Sex: Male

DRUGS (11)
  1. REVLIMID (LENALIDOMIDE) (25 MILLIGRAM, CAPSULES) [Suspect]
     Indication: PLASMA CELL MYELOMA
     Route: 048
     Dates: start: 201004
  2. DEXAMETHASONE (DEXAMETHASONE) (TABLETS) [Concomitant]
  3. CARVEDILOL (CARVEDILOL) (UNKNOWN) [Concomitant]
  4. MOTRIN (IBUPROFEN) (UNKNOWN) [Concomitant]
  5. AMLODIPINE (AMLODIPINE) (UNKNOWN) [Concomitant]
  6. LISINOPRIL (LISINOPRIL) (UNKNOWN) (LISINOPRIL) [Concomitant]
  7. CLONIDINE (CLONIDINE) (UNKNOWN) [Concomitant]
  8. PERCOCET (OXYCOCET) (UNKNOWN) [Concomitant]
  9. ONDASETRON (ONDANSETRON) (TABLETS) [Concomitant]
  10. PROCHLORPERAZINE (PROCHLORPERAZINE) (UNKNOWN) [Concomitant]
  11. OXYCODONE (OXYCODONE) (UNKNOWN) (OXYCODONE) [Concomitant]

REACTIONS (2)
  - Neutrophil count decreased [None]
  - Platelet count decreased [None]
